FAERS Safety Report 5248618-0 (Version None)
Quarter: 2007Q1

REPORT INFORMATION
  Report Type: 
  Country: None (occurrence: None)
  Receive Date: 20070222
  Receipt Date: 20070205
  Transmission Date: 20070707
  Serious: Yes (Hospitalization)
  Sender: FDA-Public Use
  Company Number: 07-000279

PATIENT
  Age: 17 Year
  Sex: Male

DRUGS (6)
  1. DORYX [Suspect]
  2. LAMICTAL [Suspect]
     Indication: EPILEPSY
  3. TRILEPTAL [Suspect]
     Dates: start: 20020101
  4. ADDERALL XR (AMFETAMINE ASPARTATE, AMFETAMINE SULFATE, DEXAMFETAMINE S [Concomitant]
  5. FLUOXETINE [Concomitant]
  6. MULTIVITAMINS (ASCORBIC ACID, ERGOCALCIFEROL, FOLIC ACID, NICOTINAMIDE [Concomitant]

REACTIONS (12)
  - COMPLEX PARTIAL SEIZURES [None]
  - CONVULSION [None]
  - CONVULSIVE THRESHOLD LOWERED [None]
  - DRUG INTERACTION [None]
  - FALL [None]
  - GRAND MAL CONVULSION [None]
  - LOCAL SWELLING [None]
  - MENTAL IMPAIRMENT [None]
  - TELANGIECTASIA [None]
  - THROMBOCYTHAEMIA [None]
  - UNEQUAL LIMB LENGTH [None]
  - WEIGHT INCREASED [None]
